FAERS Safety Report 5691994-5 (Version None)
Quarter: 2008Q2

REPORT INFORMATION
  Report Type: 
  Country: None (occurrence: None)
  Receive Date: 20080402
  Receipt Date: 20080327
  Transmission Date: 20081010
  Serious: Yes (Other)
  Sender: FDA-Public Use
  Company Number: US-TEVA-169288USA

PATIENT
  Sex: Female

DRUGS (2)
  1. METRONIDAZOLE 250MG TAB [Suspect]
     Indication: FOOD POISONING
     Route: 048
     Dates: start: 20080201, end: 20080205
  2. ESTROGENS CONJUGATED [Concomitant]

REACTIONS (5)
  - ADVERSE DRUG REACTION [None]
  - MONOPLEGIA [None]
  - PAIN IN EXTREMITY [None]
  - PERIPHERAL COLDNESS [None]
  - SENSORY LOSS [None]
